FAERS Safety Report 15583383 (Version 1)
Quarter: 2018Q4

REPORT INFORMATION
  Report Type: Spontaneous
  Country: FR (occurrence: FR)
  Receive Date: 20181103
  Receipt Date: 20181103
  Transmission Date: 20190205
  Serious: Yes (Hospitalization)
  Sender: FDA-Public Use
  Company Number: FR-TEVA-2018-FR-971114

PATIENT
  Age: 27 Year
  Sex: Male

DRUGS (1)
  1. MINOXIDIL. [Suspect]
     Active Substance: MINOXIDIL
     Indication: ANDROGENETIC ALOPECIA
     Dosage: 3 ML DAILY;
     Route: 003
     Dates: start: 2018, end: 2018

REACTIONS (1)
  - Psychotic symptom [Recovered/Resolved]

NARRATIVE: CASE EVENT DATE: 201806
